FAERS Safety Report 12844494 (Version 1)
Quarter: 2016Q4

REPORT INFORMATION
  Report Type: Spontaneous
  Country: US (occurrence: US)
  Receive Date: 20161013
  Receipt Date: 20161013
  Transmission Date: 20170207
  Serious: No
  Sender: FDA-Public Use
  Company Number: US-ROCHE-1632124

PATIENT
  Sex: Male

DRUGS (4)
  1. DIAZEPAM. [Concomitant]
     Active Substance: DIAZEPAM
     Dosage: 0.5 (4 TIMES DAILY)
     Route: 048
  2. OXYCODONE [Concomitant]
     Active Substance: OXYCODONE
     Dosage: AS NEEDED
     Route: 048
  3. MORPHINE SULFATE EXTENDED RELEASE [Concomitant]
     Active Substance: MORPHINE SULFATE
     Route: 048
  4. ZELBORAF [Suspect]
     Active Substance: VEMURAFENIB
     Indication: MALIGNANT MELANOMA
     Route: 048
     Dates: start: 20150723

REACTIONS (4)
  - Myalgia [Unknown]
  - Sunburn [Unknown]
  - Drug dose omission [Unknown]
  - Arthralgia [Unknown]
